FAERS Safety Report 4298479-1 (Version None)
Quarter: 2004Q1

REPORT INFORMATION
  Report Type: 
  Country: None (occurrence: None)
  Receive Date: 20040218
  Receipt Date: 20031013
  Transmission Date: 20041129
  Serious: Yes (Hospitalization, Other)
  Sender: FDA-Public Use
  Company Number: US-BRISTOL-MYERS SQUIBB COMPANY-12413068

PATIENT
  Age: 36 Year
  Sex: Female

DRUGS (6)
  1. STADOL [Suspect]
     Indication: MIGRAINE
     Route: 045
     Dates: start: 19940801
  2. PHENERGAN [Concomitant]
  3. DEPAKOTE [Concomitant]
  4. PROMETHAZINE [Concomitant]
  5. SKELAXIN [Concomitant]
  6. FIORICET [Concomitant]

REACTIONS (2)
  - DEPENDENCE [None]
  - DEPRESSION [None]
